FAERS Safety Report 5588066-7 (Version None)
Quarter: 2008Q1

REPORT INFORMATION
  Report Type: 
  Country: None (occurrence: None)
  Receive Date: 20080111
  Receipt Date: 20080107
  Transmission Date: 20080703
  Serious: Yes (Hospitalization, Other)
  Sender: FDA-Public Use
  Company Number: PHEH2006US03112

PATIENT
  Age: 75 Year
  Sex: Female
  Weight: 65.759 kg

DRUGS (4)
  1. ESTRADERM [Suspect]
     Indication: MENOPAUSAL SYMPTOMS
     Dosage: UNK, UNK
     Route: 062
  2. PREMARIN [Suspect]
     Indication: MENOPAUSAL SYMPTOMS
  3. PROVERA [Suspect]
     Indication: MENOPAUSAL SYMPTOMS
  4. SYNTHROID [Concomitant]

REACTIONS (35)
  - ADENOMYOSIS [None]
  - ANGIOGRAM PULMONARY [None]
  - ARTERIOGRAM CORONARY ABNORMAL [None]
  - ARTERIOSCLEROSIS CORONARY ARTERY [None]
  - BASAL CELL CARCINOMA [None]
  - BIOPSY BREAST ABNORMAL [None]
  - BREAST CANCER IN SITU [None]
  - CANDIDIASIS [None]
  - CARDIOMYOPATHY [None]
  - CATHETERISATION CARDIAC ABNORMAL [None]
  - CERVICITIS [None]
  - CHEST DISCOMFORT [None]
  - CHEST PAIN [None]
  - CHOLECYSTECTOMY [None]
  - CHOLELITHIASIS [None]
  - ENDOMETRIAL DISORDER [None]
  - HYDROMETRA [None]
  - HYSTERECTOMY [None]
  - INTERVERTEBRAL DISC DEGENERATION [None]
  - LEFT VENTRICULAR DYSFUNCTION [None]
  - LEIOMYOMA [None]
  - MAMMOGRAM ABNORMAL [None]
  - MASS [None]
  - MASTECTOMY [None]
  - NECK PAIN [None]
  - NUCLEAR MAGNETIC RESONANCE IMAGING ABNORMAL [None]
  - OESTROGEN RECEPTOR ASSAY POSITIVE [None]
  - OOPHORECTOMY [None]
  - OVARIAN ATROPHY [None]
  - PROGESTERONE RECEPTOR ASSAY POSITIVE [None]
  - SCINTIGRAPHY [None]
  - ULTRASOUND BILIARY TRACT [None]
  - ULTRASOUND BREAST ABNORMAL [None]
  - ULTRASOUND UTERUS ABNORMAL [None]
  - VAGINAL HAEMORRHAGE [None]
